FAERS Safety Report 5409549-6 (Version None)
Quarter: 2007Q3

REPORT INFORMATION
  Report Type: 
  Country: None (occurrence: None)
  Receive Date: 20070807
  Receipt Date: 20070807
  Transmission Date: 20080115
  Serious: Yes (Hospitalization)
  Sender: FDA-Public Use
  Company Number: None

PATIENT
  Sex: Male
  Weight: 73.63 kg

DRUGS (1)
  1. TEMOZOLOMIDE [Suspect]
     Dosage: 2380 MG

REACTIONS (2)
  - BLOOD PRESSURE INCREASED [None]
  - SMALL INTESTINAL OBSTRUCTION [None]
